FAERS Safety Report 19021097 (Version 1)
Quarter: 2021Q1

REPORT INFORMATION
  Report Type: Spontaneous
  Country: CA (occurrence: CA)
  Receive Date: 20210317
  Receipt Date: 20210317
  Transmission Date: 20210420
  Serious: Yes (Life-Threatening)
  Sender: FDA-Public Use
  Company Number: CA-ROCHE-2789778

PATIENT
  Age: 70 Year
  Sex: Male

DRUGS (10)
  1. DIAMICRON [Concomitant]
     Active Substance: GLICLAZIDE
  2. METFORMIN [Concomitant]
     Active Substance: METFORMIN HYDROCHLORIDE
  3. RAMIPRIL. [Concomitant]
     Active Substance: RAMIPRIL
  4. GLUCOBAY [Concomitant]
     Active Substance: ACARBOSE
  5. RITUXIMAB. [Suspect]
     Active Substance: RITUXIMAB
     Indication: IMMUNE THROMBOCYTOPENIA
     Route: 042
  6. CIPRO [Suspect]
     Active Substance: CIPROFLOXACIN HYDROCHLORIDE
     Indication: PRODUCT USED FOR UNKNOWN INDICATION
     Route: 065
  7. PANTOPRAZOLE MAGNESIUM [Concomitant]
     Active Substance: PANTOPRAZOLE MAGNESIUM
  8. FLOMAX [Concomitant]
     Active Substance: TAMSULOSIN HYDROCHLORIDE
  9. PREDNISONE. [Concomitant]
     Active Substance: PREDNISONE
  10. JANUVIA [Concomitant]
     Active Substance: SITAGLIPTIN PHOSPHATE

REACTIONS (3)
  - Platelet count decreased [Not Recovered/Not Resolved]
  - Off label use [Not Recovered/Not Resolved]
  - Drug hypersensitivity [Not Recovered/Not Resolved]
